FAERS Safety Report 11285952 (Version 1)
Quarter: 2015Q3

REPORT INFORMATION
  Report Type: Spontaneous
  Country: CH (occurrence: CH)
  Receive Date: 20150721
  Receipt Date: 20150721
  Transmission Date: 20151125
  Serious: Yes (Hospitalization)
  Sender: FDA-Public Use
  Company Number: CH-ASTRAZENECA-2015SE68575

PATIENT
  Age: 1131 Month
  Sex: Female
  Weight: 80 kg

DRUGS (17)
  1. DAFALGAN [Concomitant]
     Active Substance: ACETAMINOPHEN
  2. MAGNESIUM [Concomitant]
     Active Substance: MAGNESIUM
  3. TOREM [Interacting]
     Active Substance: TORSEMIDE
     Indication: ESSENTIAL HYPERTENSION
     Route: 048
     Dates: end: 20150523
  4. ASPIRIN. [Concomitant]
     Active Substance: ASPIRIN
     Route: 048
  5. ZANIDIP [Concomitant]
     Active Substance: LERCANIDIPINE HYDROCHLORIDE
     Dates: end: 20150523
  6. PANTOZOL [Concomitant]
     Active Substance: PANTOPRAZOLE SODIUM
     Dates: end: 20150524
  7. TOBRADEX [Concomitant]
     Active Substance: DEXAMETHASONE\TOBRAMYCIN
     Dates: end: 20150524
  8. PRONTOLAX [Concomitant]
     Active Substance: BISACODYL
     Dates: end: 20150524
  9. ATACAND [Suspect]
     Active Substance: CANDESARTAN CILEXETIL
     Indication: ESSENTIAL HYPERTENSION
     Route: 048
     Dates: end: 20150523
  10. TAMBOCOR [Interacting]
     Active Substance: FLECAINIDE ACETATE
     Route: 048
     Dates: end: 20150523
  11. ZOLDORM [Concomitant]
     Active Substance: ZOLPIDEM TARTRATE
  12. TRANDATE [Interacting]
     Active Substance: LABETALOL HYDROCHLORIDE
     Indication: ESSENTIAL HYPERTENSION
     Route: 048
     Dates: start: 20150508, end: 20150523
  13. MOVICOL [Concomitant]
     Active Substance: POLYETHYLENE GLYCOL 3350\POTASSIUM CHLORIDE\SODIUM BICARBONATE\SODIUM CHLORIDE
  14. TRANXILIUM [Concomitant]
     Active Substance: CLORAZEPATE DIPOTASSIUM
     Dosage: 5 CAPSULES
     Dates: end: 20150522
  15. LYRICA [Concomitant]
     Active Substance: PREGABALIN
  16. REMERON [Concomitant]
     Active Substance: MIRTAZAPINE
  17. AULIN [Interacting]
     Active Substance: NIMESULIDE
     Route: 048
     Dates: end: 20150523

REACTIONS (6)
  - Atrioventricular block complete [Recovered/Resolved]
  - Drug prescribing error [Recovered/Resolved]
  - Drug interaction [Unknown]
  - Acute prerenal failure [Recovered/Resolved]
  - Hyperkalaemia [Recovered/Resolved]
  - Bradycardia [Recovered/Resolved]

NARRATIVE: CASE EVENT DATE: 201505
